FAERS Safety Report 23623686 (Version 1)
Quarter: 2024Q1

REPORT INFORMATION
  Report Type: Spontaneous
  Country: US (occurrence: None)
  Receive Date: 20240312
  Receipt Date: 20240312
  Transmission Date: 20240410
  Serious: No
  Sender: FDA-Public Use
  Company Number: None

PATIENT
  Age: 64 Year
  Sex: Female
  Weight: 38.7 kg

DRUGS (1)
  1. EMGALITY [Suspect]
     Active Substance: GALCANEZUMAB-GNLM
     Dosage: OTHER FREQUENCY : 30 DAYS;?
     Route: 058
     Dates: start: 20240112, end: 20240312

REACTIONS (4)
  - Palpitations [None]
  - Hypoaesthesia [None]
  - Dyspnoea [None]
  - Post procedural complication [None]
